FAERS Safety Report 6920236-5 (Version None)
Quarter: 2010Q3

REPORT INFORMATION
  Report Type: 
  Country: None (occurrence: None)
  Receive Date: 20100811
  Receipt Date: 20100729
  Transmission Date: 20110219
  Serious: Yes (Other)
  Sender: FDA-Public Use
  Company Number: AU-GILEAD-E2B_00000768

PATIENT
  Sex: Male
  Weight: 72.4 kg

DRUGS (2)
  1. LETAIRIS [Suspect]
     Indication: FLUID RETENTION
     Dosage: 5MG PER DAY
     Route: 065
     Dates: start: 20090714, end: 20100401
  2. HYDRENE [Concomitant]
     Indication: HYPERTENSION
     Route: 048
     Dates: end: 20090803

REACTIONS (5)
  - COUGH [None]
  - FLUID RETENTION [None]
  - OEDEMA PERIPHERAL [None]
  - TREATMENT NONCOMPLIANCE [None]
  - WEIGHT INCREASED [None]
